FAERS Safety Report 22390421 (Version 1)
Quarter: 2023Q2

REPORT INFORMATION
  Report Type: Spontaneous
  Country: US (occurrence: US)
  Receive Date: 20230531
  Receipt Date: 20230531
  Transmission Date: 20230721
  Serious: No
  Sender: FDA-Public Use
  Company Number: US-INSUD PHARMA-2305US03405

PATIENT
  Sex: Female

DRUGS (2)
  1. SLYND [Suspect]
     Active Substance: DROSPIRENONE
     Indication: Affective disorder
     Dosage: UNKNOWN
     Route: 048
     Dates: start: 202305
  2. SLYND [Suspect]
     Active Substance: DROSPIRENONE
     Indication: Menstrual cycle management

REACTIONS (2)
  - Intermenstrual bleeding [Unknown]
  - Off label use [Unknown]

NARRATIVE: CASE EVENT DATE: 20230501
